FAERS Safety Report 11612334 (Version 4)
Quarter: 2015Q4

REPORT INFORMATION
  Report Type: Spontaneous
  Country: US (occurrence: US)
  Receive Date: 20151008
  Receipt Date: 20151029
  Transmission Date: 20160304
  Serious: Yes (Death)
  Sender: FDA-Public Use
  Company Number: US-009507513-1510USA003490

PATIENT
  Age: 68 Year
  Sex: Male

DRUGS (5)
  1. LEVEMIR [Concomitant]
     Active Substance: INSULIN DETEMIR
     Dosage: UNK
  2. KEYTRUDA [Suspect]
     Active Substance: PEMBROLIZUMAB
     Indication: MALIGNANT MELANOMA STAGE IV
     Dosage: 200 MG, EVERY 21 DAYS, RECEIVED ONLY ONE DOSE TOTAL
     Route: 042
     Dates: start: 20150716
  3. COMPAZINE [Concomitant]
     Active Substance: PROCHLORPERAZINE MALEATE
     Dosage: UNK
  4. NOVOLOG [Concomitant]
     Active Substance: INSULIN ASPART
     Dosage: UNK
  5. ALBUTEROL. [Concomitant]
     Active Substance: ALBUTEROL
     Dosage: UNK

REACTIONS (7)
  - Pallor [Unknown]
  - Lid sulcus deepened [Unknown]
  - Death [Fatal]
  - Pleural effusion [Unknown]
  - Unresponsive to stimuli [Unknown]
  - Dehydration [Unknown]
  - Nodule [Unknown]

NARRATIVE: CASE EVENT DATE: 201507
